FAERS Safety Report 5746818-4 (Version None)
Quarter: 2008Q2

REPORT INFORMATION
  Report Type: 
  Country: None (occurrence: None)
  Receive Date: 20080522
  Receipt Date: 20080513
  Transmission Date: 20081010
  Serious: Yes (Death)
  Sender: FDA-Public Use
  Company Number: MX-PFIZER INC-2008041996

PATIENT
  Age: 69 Year
  Sex: Male

DRUGS (1)
  1. CHANTIX [Suspect]
     Route: 048

REACTIONS (4)
  - ABDOMINAL PAIN UPPER [None]
  - DIZZINESS [None]
  - GASTRIC HAEMORRHAGE [None]
  - MYOCARDIAL INFARCTION [None]
